FAERS Safety Report 6300593-3 (Version None)
Quarter: 2009Q3

REPORT INFORMATION
  Report Type: 
  Country: None (occurrence: None)
  Receive Date: 20090806
  Receipt Date: 20090406
  Transmission Date: 20100115
  Serious: Yes (Hospitalization)
  Sender: FDA-Public Use
  Company Number: US-ABBOTT-09P-163-0564596-00

PATIENT
  Sex: Male
  Weight: 54.48 kg

DRUGS (3)
  1. DEPAKOTE ER [Suspect]
     Indication: EPILEPSY
     Dosage: 1 TAB AM 2 TAB QHS
     Route: 048
     Dates: start: 20040101, end: 20090201
  2. DEPAKOTE ER [Suspect]
     Dosage: 1 TAB AM 1 TAB QHS
     Route: 048
     Dates: start: 20090201
  3. ALBUTEROL [Concomitant]
     Indication: ASTHMA
     Route: 055

REACTIONS (6)
  - ABDOMINAL DISCOMFORT [None]
  - COUGH [None]
  - DRUG INEFFECTIVE [None]
  - PNEUMONIA [None]
  - RHINORRHOEA [None]
  - THERAPEUTIC AGENT TOXICITY [None]
